FAERS Safety Report 6536757-3 (Version None)
Quarter: 2010Q1

REPORT INFORMATION
  Report Type: 
  Country: None (occurrence: None)
  Receive Date: 20100113
  Receipt Date: 20100104
  Transmission Date: 20100710
  Serious: Yes (Death, Hospitalization, Disabling)
  Sender: FDA-Public Use
  Company Number: GB-PURDUE-GBR_2008_0003878

PATIENT
  Sex: Male

DRUGS (2)
  1. OXYNORM [Suspect]
     Indication: DRUG USE FOR UNKNOWN INDICATION
     Dosage: 5 MG, UNK
     Route: 030
  2. IRON [Concomitant]

REACTIONS (9)
  - CONFUSIONAL STATE [None]
  - DEATH [None]
  - DYSPNOEA [None]
  - HALLUCINATION [None]
  - HYPERHIDROSIS [None]
  - NAUSEA [None]
  - PNEUMONIA [None]
  - PYREXIA [None]
  - VOMITING [None]
